FAERS Safety Report 17448332 (Version 2)
Quarter: 2020Q1

REPORT INFORMATION
  Report Type: Spontaneous
  Country: US (occurrence: US)
  Receive Date: 20200223
  Receipt Date: 20200317
  Transmission Date: 20200409
  Serious: No
  Sender: FDA-Public Use
  Company Number: US-ASTRAZENECA-2020SE16767

PATIENT
  Age: 929 Month
  Sex: Female
  Weight: 71.2 kg

DRUGS (11)
  1. SYNTHROID [Concomitant]
     Active Substance: LEVOTHYROXINE SODIUM
     Indication: THYROID DISORDER
  2. MELOXICAM. [Concomitant]
     Active Substance: MELOXICAM
  3. PLAQUENIL [Concomitant]
     Active Substance: HYDROXYCHLOROQUINE SULFATE
  4. DESYREL [Concomitant]
     Active Substance: TRAZODONE HYDROCHLORIDE
  5. GABAPENTIN. [Concomitant]
     Active Substance: GABAPENTIN
     Indication: NEUROPATHY PERIPHERAL
  6. BYDUREON [Suspect]
     Active Substance: EXENATIDE
     Indication: TYPE 2 DIABETES MELLITUS
     Route: 058
  7. CYMBALTA [Concomitant]
     Active Substance: DULOXETINE HYDROCHLORIDE
     Indication: NEUROPATHY PERIPHERAL
  8. MIRABETON [Concomitant]
     Route: 048
  9. ASTEPRO [Concomitant]
     Active Substance: AZELASTINE HYDROCHLORIDE
     Indication: HYPERSENSITIVITY
     Route: 045
     Dates: start: 1985
  10. VIT D [Concomitant]
     Active Substance: VITAMIN D NOS
  11. METFORMIN 50 ER [Concomitant]

REACTIONS (9)
  - Pharyngeal disorder [Not Recovered/Not Resolved]
  - Dry throat [Unknown]
  - Needle issue [Unknown]
  - Laryngitis [Not Recovered/Not Resolved]
  - Device use issue [Recovered/Resolved]
  - Device leakage [Unknown]
  - Injection site pain [Unknown]
  - Incorrect dose administered by product [Unknown]
  - Injection site haemorrhage [Recovered/Resolved]

NARRATIVE: CASE EVENT DATE: 201909
